FAERS Safety Report 7563174-X (Version None)
Quarter: 2011Q2

REPORT INFORMATION
  Report Type: 
  Country: None (occurrence: None)
  Receive Date: 20110525
  Receipt Date: 20110421
  Transmission Date: 20111010
  Serious: No
  Sender: FDA-Public Use
  Company Number: 327099

PATIENT
  Age: 38 Year
  Sex: Male

DRUGS (2)
  1. VICTOZA [Suspect]
     Indication: BLOOD GLUCOSE FLUCTUATION
     Dosage: 0.6 MG, QD PLUS 8 CLICKS, SUBCUTANEOUS
     Route: 058
     Dates: start: 20100301
  2. VICTOZA [Suspect]
     Indication: HYPOGLYCAEMIA
     Dosage: 0.6 MG, QD PLUS 8 CLICKS, SUBCUTANEOUS
     Route: 058
     Dates: start: 20100301

REACTIONS (2)
  - CONSTIPATION [None]
  - DIVERTICULITIS [None]
